FAERS Safety Report 7277269-1 (Version None)
Quarter: 2011Q1

REPORT INFORMATION
  Report Type: 
  Country: None (occurrence: None)
  Receive Date: 20110202
  Receipt Date: 20110202
  Transmission Date: 20110831
  Serious: Yes (Other)
  Sender: FDA-Public Use
  Company Number: None

PATIENT
  Age: 5 Year
  Sex: Male
  Weight: 16.3295 kg

DRUGS (2)
  1. NASONEX [Suspect]
     Indication: MULTIPLE ALLERGIES
     Dosage: ONE SPRAY IN EACH NOSTRIL ONCE A DAY NASAL
     Route: 045
     Dates: start: 20101021, end: 20110124
  2. NASONEX [Suspect]
     Indication: NASAL INFLAMMATION
     Dosage: ONE SPRAY IN EACH NOSTRIL ONCE A DAY NASAL
     Route: 045
     Dates: start: 20101021, end: 20110124

REACTIONS (5)
  - ABDOMINAL PAIN UPPER [None]
  - AGGRESSION [None]
  - PSYCHOMOTOR HYPERACTIVITY [None]
  - HEADACHE [None]
  - ANGER [None]
